FAERS Safety Report 7080971-8 (Version None)
Quarter: 2010Q4

REPORT INFORMATION
  Report Type: 
  Country: None (occurrence: None)
  Receive Date: 20101102
  Receipt Date: 20101102
  Transmission Date: 20110411
  Serious: Yes (Other)
  Sender: FDA-Public Use
  Company Number: None

PATIENT
  Age: 48 Year
  Sex: Female
  Weight: 95.2554 kg

DRUGS (1)
  1. BUPROPION HCL [Suspect]
     Indication: MAJOR DEPRESSION
     Dosage: 1 TAB DAILY PO
     Route: 048
     Dates: start: 20100814, end: 20100928

REACTIONS (3)
  - DEPRESSION [None]
  - PRODUCT ODOUR ABNORMAL [None]
  - SUICIDAL IDEATION [None]
